FAERS Safety Report 16144490 (Version 3)
Quarter: 2019Q2

REPORT INFORMATION
  Report Type: Spontaneous
  Country: PT (occurrence: PT)
  Receive Date: 20190401
  Receipt Date: 20190419
  Transmission Date: 20190711
  Serious: Yes (Life-Threatening, Hospitalization, Other)
  Sender: FDA-Public Use
  Company Number: PT-AUROBINDO-AUR-APL-2019-016815

PATIENT

DRUGS (18)
  1. ALPRAZOLAM. [Suspect]
     Active Substance: ALPRAZOLAM
     Dosage: 20 MILLIGRAM, ONCE A DAY
     Route: 065
  2. AMOXICILLIN+CLAVULANIC ACID [Suspect]
     Active Substance: AMOXICILLIN\CLAVULANIC ACID
     Indication: PNEUMONIA
     Dosage: UNK
     Route: 065
  3. AMOXICILLIN+CLAVULANIC ACID [Suspect]
     Active Substance: AMOXICILLIN\CLAVULANIC ACID
     Indication: PNEUMONIA STAPHYLOCOCCAL
  4. PARACETAMOL [Suspect]
     Active Substance: ACETAMINOPHEN
     Indication: PRODUCT USED FOR UNKNOWN INDICATION
     Dosage: 15 GRAM (OVERDOSE 15G )
     Route: 065
  5. PARACETAMOL [Suspect]
     Active Substance: ACETAMINOPHEN
     Dosage: 5 MILLIGRAM, ONCE A DAY
     Route: 065
  6. ALPRAZOLAM. [Suspect]
     Active Substance: ALPRAZOLAM
     Indication: DELIRIUM
     Dosage: UNK, UP TO 16 MG PER DAY
     Route: 065
  7. QUETIAPINE. [Suspect]
     Active Substance: QUETIAPINE
     Indication: AGITATION
     Dosage: 9 GRAM (OVERDOSE 9 GRAME)
     Route: 065
  8. QUETIAPINE. [Suspect]
     Active Substance: QUETIAPINE
     Dosage: 9 MILLIGRAM, ONCE A DAY
     Route: 065
  9. ALPRAZOLAM. [Suspect]
     Active Substance: ALPRAZOLAM
     Dosage: 40 MILLIGRAM, ONCE A DAY (OVERDOSE 40MG )
     Route: 065
  10. VENLAFAXINE [Suspect]
     Active Substance: VENLAFAXINE HYDROCHLORIDE
     Indication: PRODUCT USED FOR UNKNOWN INDICATION
     Dosage: 3 GRAM, UNK(OVERDOSE 3GRAME )
     Route: 065
  11. MIDAZOLAM [Concomitant]
     Active Substance: MIDAZOLAM HYDROCHLORIDE
     Indication: SEDATION
     Dosage: UNK
     Route: 065
  12. PROPOFOL. [Concomitant]
     Active Substance: PROPOFOL
     Indication: SEDATIVE THERAPY
     Dosage: UNK
     Route: 065
  13. ALPRAZOLAM. [Suspect]
     Active Substance: ALPRAZOLAM
     Indication: AGITATION
     Dosage: 40 GRAM
     Route: 065
  14. FENTANYL. [Suspect]
     Active Substance: FENTANYL
     Indication: SEDATION
     Dosage: UNK
     Route: 065
  15. CODEINE [Suspect]
     Active Substance: CODEINE
     Indication: PRODUCT USED FOR UNKNOWN INDICATION
     Dosage: 900 MILLIGRAM (OVERDOSE 900MG)
     Route: 065
  16. ACETYLSALICYLIC ACID [Suspect]
     Active Substance: ASPIRIN
     Indication: PRODUCT USED FOR UNKNOWN INDICATION
     Dosage: UNK
     Route: 065
  17. QUETIAPINE. [Suspect]
     Active Substance: QUETIAPINE
     Indication: DELIRIUM
     Dosage: UNK, UP TO 800 MG PER DAY
     Route: 065
  18. CODEINE [Suspect]
     Active Substance: CODEINE
     Dosage: 300 MILLIGRAM, DAILY
     Route: 065

REACTIONS (37)
  - Renal papillary necrosis [Recovered/Resolved]
  - Overdose [Recovered/Resolved]
  - Off label use [Unknown]
  - Drug abuse [Unknown]
  - Staphylococcal infection [Recovered/Resolved]
  - Distributive shock [Recovered/Resolved]
  - Substance abuse [Unknown]
  - Dependence [Unknown]
  - Weaning failure [Unknown]
  - Liver injury [Recovered/Resolved]
  - Nephropathy toxic [Unknown]
  - Vasoplegia syndrome [Unknown]
  - Ureteric dilatation [Recovered/Resolved]
  - Polyuria [Recovered/Resolved]
  - Acute kidney injury [Recovered/Resolved]
  - Cardiac dysfunction [Unknown]
  - Respiratory disorder [Unknown]
  - Multiple organ dysfunction syndrome [Recovered/Resolved]
  - Coma [Recovered/Resolved]
  - Respiratory failure [Unknown]
  - Hypoxia [Unknown]
  - Pneumonia [Recovered/Resolved]
  - Agitation [Unknown]
  - Intentional overdose [Unknown]
  - Tubulointerstitial nephritis [Recovered/Resolved]
  - Bacteraemia [Unknown]
  - Anuria [Recovered/Resolved]
  - Vocal cord paresis [Unknown]
  - Neurological symptom [Unknown]
  - Cardiovascular disorder [Unknown]
  - Normochromic normocytic anaemia [Recovered/Resolved]
  - Hydronephrosis [Recovered/Resolved]
  - Delirium [Recovered/Resolved]
  - Vocal cord paralysis [Unknown]
  - Nervous system disorder [Unknown]
  - Hepatic function abnormal [Unknown]
  - Cholestatic liver injury [Recovering/Resolving]
